FAERS Safety Report 6375183-7 (Version None)
Quarter: 2009Q3

REPORT INFORMATION
  Report Type: 
  Country: None (occurrence: None)
  Receive Date: 20090921
  Receipt Date: 20090911
  Transmission Date: 20100115
  Serious: Yes (Hospitalization)
  Sender: FDA-Public Use
  Company Number: 2009-190754-NL

PATIENT
  Age: 28 Year
  Sex: Female
  Weight: 63 kg

DRUGS (1)
  1. NUVARING [Suspect]
     Indication: CONTRACEPTION
     Dates: start: 20060101, end: 20080101

REACTIONS (12)
  - ANTIPHOSPHOLIPID ANTIBODIES [None]
  - BREAST PAIN [None]
  - COSTOCHONDRITIS [None]
  - FACTOR V DEFICIENCY [None]
  - FIBROSIS [None]
  - LUNG CONSOLIDATION [None]
  - MYALGIA [None]
  - PLEURAL EFFUSION [None]
  - PNEUMONIA [None]
  - POST PROCEDURAL COMPLICATION [None]
  - PULMONARY EMBOLISM [None]
  - SARCOIDOSIS [None]
